FAERS Safety Report 16990194 (Version 1)
Quarter: 2019Q4

REPORT INFORMATION
  Report Type: Spontaneous
  Country: US (occurrence: US)
  Receive Date: 20191101
  Receipt Date: 20191101
  Transmission Date: 20200122
  Serious: Yes (Hospitalization)
  Sender: FDA-Public Use
  Company Number: None

PATIENT
  Age: 87 Year
  Sex: Female
  Weight: 81 kg

DRUGS (1)
  1. HYDRALAZINE [Suspect]
     Active Substance: HYDRALAZINE HYDROCHLORIDE
     Route: 048

REACTIONS (11)
  - Antineutrophil cytoplasmic antibody positive [None]
  - Hypophagia [None]
  - Acute kidney injury [None]
  - Weight decreased [None]
  - Asthenia [None]
  - Double stranded DNA antibody positive [None]
  - Vasculitis [None]
  - Renal failure [None]
  - Arthralgia [None]
  - Abdominal pain [None]
  - Glomerulonephritis rapidly progressive [None]

NARRATIVE: CASE EVENT DATE: 20190911
